FAERS Safety Report 22341960 (Version 1)
Quarter: 2023Q2

REPORT INFORMATION
  Report Type: Spontaneous
  Country: PT (occurrence: PT)
  Receive Date: 20230518
  Receipt Date: 20230518
  Transmission Date: 20230722
  Serious: Yes (Other)
  Sender: FDA-Public Use
  Company Number: None

PATIENT
  Age: 42 Year
  Sex: Female

DRUGS (1)
  1. TYSABRI [Suspect]
     Active Substance: NATALIZUMAB
     Indication: Multiple sclerosis
     Dosage: 20MG/ML
     Route: 050
     Dates: start: 20230502, end: 20230502

REACTIONS (7)
  - Erythema [Recovered/Resolved]
  - Vomiting [Recovered/Resolved]
  - Pruritus [Recovered/Resolved]
  - Diarrhoea [Recovered/Resolved]
  - Feeling hot [Recovered/Resolved]
  - Nausea [Recovered/Resolved]
  - Tremor [Recovered/Resolved]

NARRATIVE: CASE EVENT DATE: 20230502
